FAERS Safety Report 17252485 (Version 1)
Quarter: 2020Q1

REPORT INFORMATION
  Report Type: Spontaneous
  Country: US (occurrence: US)
  Receive Date: 20200108
  Receipt Date: 20200108
  Transmission Date: 20200409
  Serious: Yes (Disabling)
  Sender: FDA-Public Use
  Company Number: None

PATIENT
  Age: 24 Year
  Sex: Female
  Weight: 58.5 kg

DRUGS (6)
  1. MYORISAN [Suspect]
     Active Substance: ISOTRETINOIN
     Indication: ACNE
     Dosage: ?          QUANTITY:1 CAPSULE(S);?
     Route: 048
     Dates: start: 20171001, end: 20180405
  2. LAMICTAL [Concomitant]
     Active Substance: LAMOTRIGINE
  3. TOPIRIMATE [Concomitant]
     Active Substance: TOPIRAMATE
  4. XIFAXAN [Concomitant]
     Active Substance: RIFAXIMIN
  5. LEXAPRO [Concomitant]
     Active Substance: ESCITALOPRAM OXALATE
  6. VITAMIN B12 [Concomitant]
     Active Substance: CYANOCOBALAMIN

REACTIONS (8)
  - Fatigue [None]
  - Irritable bowel syndrome [None]
  - Autoimmune disorder [None]
  - Abdominal pain upper [None]
  - Arthralgia [None]
  - Gastrointestinal bacterial overgrowth [None]
  - Myalgia [None]
  - Gluten sensitivity [None]

NARRATIVE: CASE EVENT DATE: 20171201
